FAERS Safety Report 5278073-6 (Version None)
Quarter: 2007Q1

REPORT INFORMATION
  Report Type: 
  Country: None (occurrence: None)
  Receive Date: 20070321
  Receipt Date: 20070309
  Transmission Date: 20070707
  Serious: Yes (Death, Hospitalization)
  Sender: FDA-Public Use
  Company Number: 2007SP004717

PATIENT
  Age: 58 Year
  Sex: Male

DRUGS (7)
  1. TEMODAL [Suspect]
     Indication: GLIOBLASTOMA MULTIFORME
     Dosage: 75 MG/M2; PO
     Route: 048
  2. FILGRASTIM (CON.) [Concomitant]
  3. DEXAMETHASONE (CON.) [Concomitant]
  4. CIPROFLOXACINE (CON.) [Concomitant]
  5. CEFTAZIDIM (CON.) [Concomitant]
  6. FLUCONAZOLE (CON.) [Concomitant]
  7. RADIOTHERAPY (CON.) [Concomitant]

REACTIONS (7)
  - FEBRILE NEUTROPENIA [None]
  - MUCOSAL INFLAMMATION [None]
  - ODYNOPHAGIA [None]
  - ORAL CANDIDIASIS [None]
  - PHARYNGOLARYNGEAL PAIN [None]
  - PYREXIA [None]
  - THROMBOCYTOPENIA [None]
